FAERS Safety Report 14781913 (Version 1)
Quarter: 2018Q2

REPORT INFORMATION
  Report Type: Report from Study
  Country: IN (occurrence: IN)
  Receive Date: 20180420
  Receipt Date: 20180420
  Transmission Date: 20180711
  Serious: Yes (Death, Other)
  Sender: FDA-Public Use
  Company Number: IN-ROCHE-2106579

PATIENT

DRUGS (8)
  1. DEFLAZACORT [Suspect]
     Active Substance: DEFLAZACORT
     Indication: TAKAYASU^S ARTERITIS
     Route: 065
  2. TOCILIZUMAB. [Suspect]
     Active Substance: TOCILIZUMAB
     Indication: TAKAYASU^S ARTERITIS
     Route: 042
  3. METHOTREXATE. [Suspect]
     Active Substance: METHOTREXATE
     Indication: TAKAYASU^S ARTERITIS
     Dosage: 15-25 MG/WEEK
     Route: 065
  4. PREDNISOLONE. [Suspect]
     Active Substance: PREDNISOLONE
     Indication: TAKAYASU^S ARTERITIS
     Route: 048
  5. PREDNISOLONE. [Suspect]
     Active Substance: PREDNISOLONE
     Dosage: LESS THAN OR EQUAL TO 5 MG/DAY
     Route: 048
  6. MYCOPHENOLATE MOFETIL. [Suspect]
     Active Substance: MYCOPHENOLATE MOFETIL
     Indication: TAKAYASU^S ARTERITIS
     Dosage: 2-3 G/DAY
     Route: 065
  7. DEFLAZACORT [Suspect]
     Active Substance: DEFLAZACORT
     Dosage: LESS THAN OR EQULA TO 6 MG/DAY
     Route: 065
  8. AZATHIOPRINE. [Suspect]
     Active Substance: AZATHIOPRINE
     Indication: TAKAYASU^S ARTERITIS
     Route: 065

REACTIONS (2)
  - Acute myeloid leukaemia [Unknown]
  - Sepsis [Fatal]
